FAERS Safety Report 24547624 (Version 1)
Quarter: 2024Q4

REPORT INFORMATION
  Report Type: Spontaneous
  Country: US (occurrence: US)
  Receive Date: 20241025
  Receipt Date: 20241025
  Transmission Date: 20250115
  Serious: No
  Sender: DR REDDYS
  Company Number: US-DRL-USA-SPO/USA/24/0015520

PATIENT
  Age: 26 Year
  Sex: Female

DRUGS (2)
  1. ACCUTANE [Suspect]
     Active Substance: ISOTRETINOIN
     Indication: Acne
     Dosage: BOX OF 30 (3 PACKS OF 10 CAPSULES)
     Route: 065
     Dates: start: 20240712
  2. ACCUTANE [Suspect]
     Active Substance: ISOTRETINOIN
     Dosage: BOX OF 30 (3 PACKS OF 10 CAPSULES)
     Route: 065
     Dates: start: 20240926, end: 20241014

REACTIONS (1)
  - Product dose omission issue [Unknown]
